FAERS Safety Report 6358004-8 (Version None)
Quarter: 2009Q3

REPORT INFORMATION
  Report Type: 
  Country: None (occurrence: None)
  Receive Date: 20090916
  Receipt Date: 20090908
  Transmission Date: 20100115
  Serious: Yes (Hospitalization)
  Sender: FDA-Public Use
  Company Number: NL-TEVA-208906ISR

PATIENT
  Sex: Male

DRUGS (1)
  1. DOXYCYCLINE HYCLATE 100MG DISPERSABLE TABLET [Suspect]
     Dates: start: 20081205

REACTIONS (1)
  - CROHN'S DISEASE [None]
